FAERS Safety Report 11131568 (Version 2)
Quarter: 2015Q2

REPORT INFORMATION
  Report Type: Spontaneous
  Country: FR (occurrence: FR)
  Receive Date: 20150522
  Receipt Date: 20150522
  Transmission Date: 20150821
  Serious: Yes (Death, Other)
  Sender: FDA-Public Use
  Company Number: PHHY2015FR058800

PATIENT
  Age: 58 Year
  Sex: Male

DRUGS (15)
  1. DOCETAXEL. [Suspect]
     Active Substance: DOCETAXEL
     Indication: PROSTATE CANCER
     Dosage: 75 MG/M2, EVERY 3 WEEKS
     Route: 065
     Dates: start: 200901
  2. ZOLEDRONATE [Suspect]
     Active Substance: ZOLEDRONIC ACID
     Indication: PROSTATE CANCER METASTATIC
     Dosage: UNK
     Route: 065
  3. STILBOESTROL [Suspect]
     Active Substance: DIETHYLSTILBESTROL
     Indication: PROSTATE CANCER METASTATIC
     Dosage: UNK
     Route: 065
  4. PREDNISONE. [Suspect]
     Active Substance: PREDNISONE
     Indication: PROSTATE CANCER
     Dosage: 10 MG DAILY/6 CYCLES
     Route: 065
  5. MITOXANTRONE [Suspect]
     Active Substance: MITOXANTRONE HYDROCHLORIDE
     Indication: PROSTATE CANCER
     Route: 065
  6. VP-16 [Suspect]
     Active Substance: ETOPOSIDE
     Dosage: 80 MG/M2 FOR C2
     Route: 065
  7. VINORELBINE [Suspect]
     Active Substance: VINORELBINE\VINORELBINE TARTRATE
     Indication: PROSTATE CANCER METASTATIC
     Dosage: 80 MG WEEKLY, 6 CYCLES
     Route: 048
  8. GOSERELIN [Suspect]
     Active Substance: GOSERELIN
     Indication: PROSTATE CANCER
     Dosage: 10.8 MG, (EVERY 3 MONTHS FOR 6 MONTHS)
     Route: 065
  9. ABIRATERONE [Suspect]
     Active Substance: ABIRATERONE
     Indication: PROSTATE CANCER METASTATIC
     Dosage: 1000 MG, QD
     Route: 065
  10. DOCETAXEL. [Suspect]
     Active Substance: DOCETAXEL
     Dosage: 60 MG/M2, EVERY 3 WEEKS
     Route: 065
  11. CARBOPLATIN. [Suspect]
     Active Substance: CARBOPLATIN
     Indication: PROSTATE CANCER METASTATIC
     Dosage: UNK
     Route: 065
     Dates: start: 200901
  12. GOSERELIN [Suspect]
     Active Substance: GOSERELIN
     Dosage: 10.8 MG, EVERY 3 MONTHS
     Route: 065
  13. BICALUTAMIDE. [Suspect]
     Active Substance: BICALUTAMIDE
     Indication: PROSTATE CANCER
     Dosage: 50 MG, QD
     Route: 065
     Dates: start: 200706, end: 200712
  14. VP-16 [Suspect]
     Active Substance: ETOPOSIDE
     Indication: PROSTATE CANCER METASTATIC
     Dosage: 100 MG/M2 FOR C1
     Route: 065
  15. VP-16 [Suspect]
     Active Substance: ETOPOSIDE
     Dosage: 75 MG/M2 FOR C3
     Route: 065

REACTIONS (12)
  - Prostate cancer metastatic [Unknown]
  - Oedema peripheral [Unknown]
  - Therapeutic response decreased [Unknown]
  - Death [Fatal]
  - Drug intolerance [Unknown]
  - Malignant neoplasm progression [Unknown]
  - Bone pain [Unknown]
  - Metastases to liver [Unknown]
  - Metastases to urinary tract [Unknown]
  - Ascites [Unknown]
  - Metastases to bone [Unknown]
  - Metastases to lung [Unknown]
